FAERS Safety Report 4905800-7 (Version None)
Quarter: 2006Q1

REPORT INFORMATION
  Report Type: 
  Country: None (occurrence: None)
  Receive Date: 20060203
  Receipt Date: 20060123
  Transmission Date: 20060701
  Serious: Yes (Other)
  Sender: FDA-Public Use
  Company Number: 221497

PATIENT
  Age: 44 Year
  Sex: Male
  Weight: 95.2 kg

DRUGS (1)
  1. NUTROPIN [Suspect]
     Indication: GROWTH HORMONE DEFICIENCY
     Dosage: 5 MG, BID;
     Dates: start: 20011001

REACTIONS (1)
  - HEPATITIS C [None]
